FAERS Safety Report 8313510-1 (Version None)
Quarter: 2012Q2

REPORT INFORMATION
  Report Type: 
  Country: None (occurrence: None)
  Receive Date: 20120426
  Receipt Date: 20120417
  Transmission Date: 20120825
  Serious: Yes (Other)
  Sender: FDA-Public Use
  Company Number: US-JNJFOC-20120408507

PATIENT
  Sex: Male
  Weight: 68.04 kg

DRUGS (2)
  1. XARELTO [Suspect]
     Indication: PRODUCT USED FOR UNKNOWN INDICATION
     Route: 065
  2. ALLEGRA [Concomitant]
     Indication: MULTIPLE ALLERGIES
     Route: 048

REACTIONS (1)
  - DRUG DIVERSION [None]
